FAERS Safety Report 8678931 (Version 2)
Quarter: 2012Q4

REPORT INFORMATION
  Report Type: Report from Study
  Country: FR (occurrence: FR)
  Receive Date: 20120723
  Receipt Date: 20121105
  Transmission Date: 20130627
  Serious: Yes (Other)
  Sender: FDA-Public Use
  Company Number: FR-ROCHE-1090435

PATIENT
  Age: 54 Year
  Sex: Male
  Weight: 84 kg

DRUGS (6)
  1. RITUXIMAB [Suspect]
     Indication: MANTLE CELL LYMPHOMA
     Route: 041
     Dates: start: 20110922, end: 20110922
  2. RITUXIMAB [Suspect]
     Route: 065
     Dates: start: 20110527, end: 20110801
  3. CARMUSTINE [Concomitant]
     Route: 065
     Dates: start: 20110923, end: 20110923
  4. ETOPOSIDE [Concomitant]
     Route: 065
     Dates: start: 20110924, end: 20110927
  5. ARACYTINE [Concomitant]
     Route: 065
     Dates: start: 20110924, end: 20110927
  6. MELPHALAN [Concomitant]
     Route: 065
     Dates: start: 20110928, end: 20110928

REACTIONS (1)
  - Neuroendocrine carcinoma [Recovered/Resolved with Sequelae]
